FAERS Safety Report 25280219 (Version 7)
Quarter: 2025Q3

REPORT INFORMATION
  Report Type: Spontaneous
  Country: US (occurrence: US)
  Receive Date: 20250507
  Receipt Date: 20250925
  Transmission Date: 20251020
  Serious: No
  Sender: BLUEPRINT MEDICINES
  Company Number: US-Blueprint Medicines Corporation-2025-AER-00915

PATIENT
  Age: 68 Year
  Sex: Male

DRUGS (5)
  1. AYVAKIT [Suspect]
     Active Substance: AVAPRITINIB
     Indication: Gastrointestinal stromal tumour
     Route: 065
     Dates: start: 20250411, end: 20250509
  2. AYVAKIT [Suspect]
     Active Substance: AVAPRITINIB
     Route: 065
  3. AYVAKIT [Suspect]
     Active Substance: AVAPRITINIB
     Route: 065
     Dates: start: 20250411
  4. AYVAKIT [Suspect]
     Active Substance: AVAPRITINIB
     Route: 065
     Dates: start: 20250411
  5. AYVAKIT [Suspect]
     Active Substance: AVAPRITINIB
     Route: 048
     Dates: start: 20250411

REACTIONS (16)
  - Fatigue [Unknown]
  - Hypersomnia [Unknown]
  - Early satiety [Unknown]
  - Rash [Unknown]
  - Nausea [Unknown]
  - Cough [Unknown]
  - Swelling face [Unknown]
  - Peripheral swelling [Unknown]
  - Lacrimation increased [Unknown]
  - Flushing [Unknown]
  - Brain fog [Unknown]
  - COVID-19 [Unknown]
  - Pallor [Unknown]
  - White blood cell count decreased [Unknown]
  - Furuncle [Unknown]
  - Epistaxis [Unknown]
